FAERS Safety Report 14488744 (Version 1)
Quarter: 2018Q1

REPORT INFORMATION
  Report Type: Spontaneous
  Country: US (occurrence: US)
  Receive Date: 20180205
  Receipt Date: 20180205
  Transmission Date: 20180509
  Serious: Yes (Other)
  Sender: FDA-Public Use
  Company Number: US-VIFOR (INTERNATIONAL) INC.-VIT-2018-01059

PATIENT
  Sex: Male

DRUGS (11)
  1. TRAMADOL HYDROCHLORIDE. [Concomitant]
     Active Substance: TRAMADOL HYDROCHLORIDE
  2. SERVENT DISKUS [Concomitant]
  3. NITROSTAT [Concomitant]
     Active Substance: NITROGLYCERIN
  4. SENSIPAR [Concomitant]
     Active Substance: CINACALCET HYDROCHLORIDE
  5. METAMUCIL [Concomitant]
     Active Substance: PLANTAGO SEED
  6. VELTASSA [Suspect]
     Active Substance: PATIROMER
     Indication: HYPERKALAEMIA
     Route: 048
     Dates: start: 20160513
  7. FISH OIL [Concomitant]
     Active Substance: FISH OIL
  8. RENVELA [Concomitant]
     Active Substance: SEVELAMER CARBONATE
  9. MAGNESIUM HYDROXIDE. [Concomitant]
     Active Substance: MAGNESIUM HYDROXIDE
  10. NEXIUM [Concomitant]
     Active Substance: ESOMEPRAZOLE MAGNESIUM
  11. PROAIR HFA [Concomitant]
     Active Substance: ALBUTEROL SULFATE

REACTIONS (2)
  - Drug dose omission [Not Recovered/Not Resolved]
  - Dialysis [Not Recovered/Not Resolved]
